FAERS Safety Report 8563476-4 (Version None)
Quarter: 2012Q3

REPORT INFORMATION
  Report Type: 
  Country: None (occurrence: None)
  Receive Date: 20120802
  Receipt Date: 20120723
  Transmission Date: 20120928
  Serious: Yes (Hospitalization)
  Sender: FDA-Public Use
  Company Number: US-009507513-1207USA011311

PATIENT

DRUGS (4)
  1. DIPHENHYDRAMINE HCL [Suspect]
     Dosage: 2500 MG, ONCE
  2. LITHIUM CARBONATE [Suspect]
     Dosage: 1 DF, UNK
     Route: 048
  3. REMERON [Suspect]
     Dosage: 90 MG, ONCE
  4. ZOCOR [Suspect]
     Dosage: 1 DF, UNK
     Route: 048

REACTIONS (7)
  - ELECTROCARDIOGRAM QRS COMPLEX PROLONGED [None]
  - TACHYCARDIA [None]
  - MULTIPLE DRUG OVERDOSE INTENTIONAL [None]
  - SUICIDE ATTEMPT [None]
  - SOMNOLENCE [None]
  - BLOOD CREATINE PHOSPHOKINASE INCREASED [None]
  - ELECTROCARDIOGRAM QT PROLONGED [None]
